FAERS Safety Report 19612347 (Version 6)
Quarter: 2022Q2

REPORT INFORMATION
  Report Type: Report from Study
  Country: CN (occurrence: CN)
  Receive Date: 20210726
  Receipt Date: 20220615
  Transmission Date: 20220721
  Serious: Yes (Hospitalization)
  Sender: FDA-Public Use
  Company Number: CN-BAXTER-2021BAX021493

PATIENT
  Age: 48 Year
  Sex: Female

DRUGS (17)
  1. CYCLOPHOSPHAMIDE [Suspect]
     Active Substance: CYCLOPHOSPHAMIDE
     Indication: Triple negative breast cancer
     Dosage: 1ST TO 3D CYCLE OF PD-L1+T-EC REGIMEN
     Route: 042
  2. CYCLOPHOSPHAMIDE [Suspect]
     Active Substance: CYCLOPHOSPHAMIDE
     Dosage: FOURTH CYCLE (WEEK 1) OF PD-L1+T-EC REGIMEN, 28 DAYS AS A CYCLE, DOSE: (600 MG/M2)
     Route: 042
     Dates: start: 20210421
  3. CYCLOPHOSPHAMIDE [Suspect]
     Active Substance: CYCLOPHOSPHAMIDE
     Dosage: FOURTH CYCLE (WEEK 3) OF PD-L1+T-EC REGIMEN
     Route: 042
     Dates: start: 20210513
  4. CYCLOPHOSPHAMIDE [Suspect]
     Active Substance: CYCLOPHOSPHAMIDE
     Dosage: FIFTH CYCLE (WEEK 1)  OF PD-L1+T-EC REGIMEN, MOST RECENT DOSE OF CYCLOPHOSPHAMIDE PRIOR TO SAE
     Route: 042
     Dates: start: 20210604, end: 20210604
  5. ATEZOLIZUMAB [Suspect]
     Active Substance: ATEZOLIZUMAB
     Indication: Triple negative breast cancer
     Dosage: 28 DAYS AS A CYCLE, SOLUTION, 1ST TO 3D CYCLE OF PD-L1+T-EC REGIMEN
     Route: 041
     Dates: start: 20210128
  6. ATEZOLIZUMAB [Suspect]
     Active Substance: ATEZOLIZUMAB
     Dosage: FOURTH CYCLE (WEEK 1) OF PD-L1+T-EC REGIMEN, 28 DAYS AS A CYCLE, SOLUTION
     Route: 041
     Dates: start: 20210421
  7. ATEZOLIZUMAB [Suspect]
     Active Substance: ATEZOLIZUMAB
     Dosage: FOURTH CYCLE (WEEK 3) OF PD-L1+T-EC REGIMEN, SOLUTION
     Route: 041
     Dates: start: 20210513
  8. ATEZOLIZUMAB [Suspect]
     Active Substance: ATEZOLIZUMAB
     Dosage: FIFTH CYCLE (WEEK 1) OF PD-LL+T-EC REGIMEN, SOLUTION, RECENT DOSE OF ATEZOLIZUMAB PRIOR TO SAE
     Route: 041
     Dates: start: 20210604, end: 20210604
  9. PACLITAXEL [Suspect]
     Active Substance: PACLITAXEL
     Indication: Triple negative breast cancer
     Dosage: DOSE: (80 MG/M2), 28 DAYS AS A CYCLE
     Route: 042
     Dates: start: 20210128
  10. PACLITAXEL [Suspect]
     Active Substance: PACLITAXEL
     Dosage: MOST RECENT DOSE OF PACLITAXEL PRIOR TO AE AND SAE
     Route: 042
     Dates: start: 20210414, end: 20210414
  11. EPIRUBICIN HYDROCHLORIDE [Suspect]
     Active Substance: EPIRUBICIN HYDROCHLORIDE
     Indication: Triple negative breast cancer
     Dosage: 1ST TO 3RD CYCLE OF PD-L1+T-EC REGIMEN
     Route: 042
  12. EPIRUBICIN HYDROCHLORIDE [Suspect]
     Active Substance: EPIRUBICIN HYDROCHLORIDE
     Dosage: DOSE: 90 MG/M2, FOURTH CYCLE (WEEK 1) OF PD-L1+T-EC REGIMEN, 28 DAYS AS A CYCLE
     Route: 042
     Dates: start: 20210421
  13. EPIRUBICIN HYDROCHLORIDE [Suspect]
     Active Substance: EPIRUBICIN HYDROCHLORIDE
     Dosage: FOURTH CYCLE (WEEK 3) OF PD-L1+T-EC REGIMEN
     Route: 042
     Dates: start: 20210513
  14. EPIRUBICIN HYDROCHLORIDE [Suspect]
     Active Substance: EPIRUBICIN HYDROCHLORIDE
     Dosage: FIFTH CYCLE (WEEK 1) OF PD-LL+T-EC REGIMEN, MOST RECENT DOSE OF EPIRUBICIN PRIOR TO SAE
     Route: 042
     Dates: start: 20210604, end: 20210604
  15. FILGRASTIM [Suspect]
     Active Substance: FILGRASTIM
     Indication: Triple negative breast cancer
     Dosage: CYCLE 4 VISIT 1, SOLUTION
     Route: 058
     Dates: start: 20210423, end: 20210423
  16. FILGRASTIM [Suspect]
     Active Substance: FILGRASTIM
     Dosage: CYCLE 5 VISIT 2
     Route: 058
     Dates: start: 20210612, end: 20210612
  17. PREDNISONE ACETATE [Concomitant]
     Active Substance: PREDNISONE ACETATE
     Indication: Adrenal insufficiency
     Dosage: UNK
     Route: 065
     Dates: start: 20210623, end: 20211230

REACTIONS (1)
  - Blood corticotrophin abnormal [Not Recovered/Not Resolved]

NARRATIVE: CASE EVENT DATE: 20210623
